FAERS Safety Report 6335815-6 (Version None)
Quarter: 2009Q3

REPORT INFORMATION
  Report Type: 
  Country: None (occurrence: None)
  Receive Date: 20090828
  Receipt Date: 20090812
  Transmission Date: 20100115
  Serious: Yes (Life-Threatening, Other)
  Sender: FDA-Public Use
  Company Number: 20090363

PATIENT
  Age: 36 Year
  Sex: Female

DRUGS (1)
  1. VENOFER [Suspect]
     Indication: IRON DEFICIENCY ANAEMIA
     Dosage: 500 MG IN, DILUTION/4 HRS INTRAVENOUS
     Route: 042
     Dates: start: 20090812, end: 20090812

REACTIONS (2)
  - BRADYCARDIA [None]
  - HYPOTENSION [None]
